FAERS Safety Report 4916010-1 (Version None)
Quarter: 2006Q1

REPORT INFORMATION
  Report Type: 
  Country: None (occurrence: None)
  Receive Date: 20060214
  Receipt Date: 20060209
  Transmission Date: 20060701
  Serious: Yes (Death)
  Sender: FDA-Public Use
  Company Number: 200512208BWH

PATIENT
  Sex: 0

DRUGS (3)
  1. TRASYLOL [Suspect]
     Indication: AORTIC SURGERY
     Dosage: INTRAVENOUS
     Route: 042
  2. PROTAMINE SULFATE [Suspect]
     Indication: AORTIC SURGERY
  3. HEPARIN [Suspect]
     Indication: AORTIC SURGERY

REACTIONS (4)
  - AORTIC THROMBOSIS [None]
  - ATRIAL THROMBOSIS [None]
  - CARDIAC PROCEDURE COMPLICATION [None]
  - INTRACARDIAC THROMBUS [None]
